FAERS Safety Report 19030498 (Version 1)
Quarter: 2021Q1

REPORT INFORMATION
  Report Type: Spontaneous
  Country: US (occurrence: US)
  Receive Date: 20210318
  Receipt Date: 20210318
  Transmission Date: 20210420
  Serious: No
  Sender: FDA-Public Use
  Company Number: None

PATIENT
  Age: 36 Year
  Sex: Female
  Weight: 72 kg

DRUGS (7)
  1. ARMOUR THYROID [Concomitant]
     Active Substance: THYROID, PORCINE
  2. FISH OIL (NORDIC NATURALS) [Concomitant]
  3. RETIN?A MICRO [Concomitant]
     Active Substance: TRETINOIN
  4. MULTI?VITAMIN (THORNE) [Concomitant]
  5. FINANCEA GEL [Concomitant]
  6. TIROSINT [Suspect]
     Active Substance: LEVOTHYROXINE SODIUM
     Indication: AUTOIMMUNE THYROIDITIS
     Dosage: ?          QUANTITY:1 CAPSULE(S);?
     Route: 048
     Dates: start: 20201002, end: 20210120
  7. DEPO?PROVERA [Concomitant]
     Active Substance: MEDROXYPROGESTERONE ACETATE

REACTIONS (4)
  - Constipation [None]
  - Migraine [None]
  - Dry skin [None]
  - Skin fissures [None]

NARRATIVE: CASE EVENT DATE: 20201016
